FAERS Safety Report 17980672 (Version 1)
Quarter: 2020Q3

REPORT INFORMATION
  Report Type: Spontaneous
  Country: FR (occurrence: FR)
  Receive Date: 20200704
  Receipt Date: 20200704
  Transmission Date: 20201103
  Serious: Yes (Hospitalization)
  Sender: FDA-Public Use
  Company Number: FR-TEVA-2020-FR-1794821

PATIENT
  Age: 47 Year
  Sex: Male
  Weight: 76 kg

DRUGS (5)
  1. OLANZAPINE. [Concomitant]
     Active Substance: OLANZAPINE
     Indication: SCHIZOPHRENIA
     Dosage: 10 MG
     Route: 048
     Dates: start: 201904
  2. DIAZEPAM. [Concomitant]
     Active Substance: DIAZEPAM
     Indication: ANXIETY
     Dosage: 25 MG
     Route: 048
     Dates: start: 20200522, end: 20200602
  3. ABILIFY MAINTENA [Concomitant]
     Active Substance: ARIPIPRAZOLE
     Indication: SCHIZOPHRENIA
     Dosage: 400 MG
     Route: 030
     Dates: start: 201808
  4. RISPERIDONE. [Suspect]
     Active Substance: RISPERIDONE
     Indication: SCHIZOPHRENIA
     Dosage: 8 MG
     Route: 048
     Dates: start: 20200522, end: 20200602
  5. CYAMEMAZINE BASE [Suspect]
     Active Substance: CYAMEMAZINE
     Indication: SCHIZOPHRENIA
     Dosage: 100 MG
     Route: 048
     Dates: start: 20200522, end: 20200603

REACTIONS (3)
  - General physical health deterioration [Recovering/Resolving]
  - Rhabdomyolysis [Recovering/Resolving]
  - Confusional state [Recovering/Resolving]

NARRATIVE: CASE EVENT DATE: 20200602
